FAERS Safety Report 9511511 (Version 1)
Quarter: 2013Q1

REPORT INFORMATION
  Report Type: Spontaneous
  Country: US (occurrence: None)
  Receive Date: 20130305
  Receipt Date: 20130305
  Transmission Date: 20140127
  Serious: Yes (Hospitalization)
  Sender: FDA-Public Use
  Company Number: 163-21880-12051967

PATIENT
  Age: 51 Year
  Sex: Male
  Weight: 75.75 kg

DRUGS (18)
  1. REVLIMID (LENALIDOMIDE) (15 MILLIGRAM, CAPSULES) [Suspect]
     Indication: PLASMA CELL MYELOMA
     Dosage: 15 MG, DAILY X 21 DAYS, PO
     Route: 048
     Dates: start: 20111201, end: 20111216
  2. AMLODIPINE (AMLODIPINE) (UNKNOWN) [Concomitant]
  3. CLONAZEPAM (CLONAZEPAM) (UNKNOWN) [Concomitant]
  4. METFORMIN (METFORMIN) (UNKNOWN) [Concomitant]
  5. PRILOSEC (OMEPRAZOLE) (UNKNOWN) [Concomitant]
  6. OXYCODONE (OXYCODONE) (UNKNOWN) (OXYCODONE) [Concomitant]
  7. PROMETHAZINE (PROMETHAZINE) (UNKNOWN) [Concomitant]
  8. VELCADE [Concomitant]
  9. VYTORIN (INEGY) (UNKNOWN) [Concomitant]
  10. TIZANIDINE (TIZANIDINE (4 MILLIGRAM, UNKNOWN)? [Concomitant]
  11. ADA (ACETYLSALICYLIC ACID) (UNKNOWN) [Concomitant]
  12. TRAMADOL (TRAMADOL) (UNKNOWN) [Concomitant]
  13. ZOLOFT (SERTRALINE HYDROCHLORIDE) (UNKNOWN) [Concomitant]
  14. MULTIVITAMINS (MULTIVITAMINS) (UNKNOWN) [Concomitant]
  15. VITAMIN B12 (CYANOCOBALAMIN) (UNKNOWN) [Concomitant]
  16. AMARYL (GLIMEPIRIDE) (UNKNOWN) [Concomitant]
  17. VITAMIN C [Concomitant]
  18. DECADRON [Concomitant]

REACTIONS (1)
  - Spinal compression fracture [None]
